FAERS Safety Report 8594765-5 (Version None)
Quarter: 2012Q3

REPORT INFORMATION
  Report Type: 
  Country: None (occurrence: None)
  Receive Date: 20120801
  Receipt Date: 20120718
  Transmission Date: 20120928
  Serious: Yes (Life-Threatening)
  Sender: FDA-Public Use
  Company Number: FK201201984

PATIENT
  Age: 37 Year
  Sex: Female
  Weight: 65 kg

DRUGS (5)
  1. THIOPENTAL SODIUM [Concomitant]
  2. FENTANYL [Concomitant]
  3. ONDANSETRON [Suspect]
     Indication: PROPHYLAXIS OF NAUSEA AND VOMITING
     Dosage: 4 MG, INTRAVENOUS (NOT OTHERWISE SPECIFIED)
     Route: 042
     Dates: start: 20120410, end: 20120410
  4. MORPHINE [Concomitant]
  5. SUXAMETHONIUM (SUXAMETHONIUM) [Concomitant]

REACTIONS (1)
  - ANAPHYLACTIC REACTION [None]
